FAERS Safety Report 8100041-7 (Version None)
Quarter: 2012Q1

REPORT INFORMATION
  Report Type: 
  Country: None (occurrence: None)
  Receive Date: 20120129
  Receipt Date: 20111101
  Transmission Date: 20120608
  Serious: No
  Sender: FDA-Public Use
  Company Number: US-ABBOTT-11P-163-0870744-00

PATIENT
  Sex: Male
  Weight: 93.07 kg

DRUGS (6)
  1. ZOCOR [Concomitant]
     Indication: BLOOD CHOLESTEROL INCREASED
  2. NEXIUM [Concomitant]
     Indication: GASTROOESOPHAGEAL REFLUX DISEASE
  3. METHOTREXATE [Concomitant]
     Indication: RHEUMATOID ARTHRITIS
  4. AMLODIPINE [Concomitant]
     Indication: HYPERTENSION
  5. INDOMETHACIN [Concomitant]
     Indication: RHEUMATOID ARTHRITIS
  6. HUMIRA [Suspect]
     Indication: PSORIATIC ARTHROPATHY
     Dates: start: 20100601

REACTIONS (1)
  - ARTHRALGIA [None]
